FAERS Safety Report 4435404-4 (Version None)
Quarter: 2004Q3

REPORT INFORMATION
  Report Type: 
  Country: None (occurrence: None)
  Receive Date: 20040826
  Receipt Date: 20040810
  Transmission Date: 20050211
  Serious: Yes (Other)
  Sender: FDA-Public Use
  Company Number: 194423

PATIENT
  Age: 58 Year
  Sex: Female
  Weight: 56.6996 kg

DRUGS (13)
  1. AVONEX [Suspect]
     Indication: MULTIPLE SCLEROSIS
     Dosage: 30 MCG QW IM
     Dates: start: 20000101, end: 20030801
  2. AVONEX [Suspect]
     Indication: MULTIPLE SCLEROSIS
     Dosage: 30 MCG QW IM
     Dates: start: 20030801
  3. DANTRIUM [Concomitant]
  4. CEFADROXIL [Concomitant]
  5. FOSAMAX [Concomitant]
  6. LIPITOR [Concomitant]
  7. ULTRAM [Concomitant]
  8. LIORESAL ^NOVARTIS^ [Concomitant]
  9. ALEVE [Concomitant]
  10. VITAMIN B COMPLEX CAP [Concomitant]
  11. VITAMIN C [Concomitant]
  12. CALTRATE [Concomitant]
  13. THERA-M [Concomitant]

REACTIONS (14)
  - ASPARTATE AMINOTRANSFERASE INCREASED [None]
  - ASPIRATION BONE MARROW ABNORMAL [None]
  - BLADDER CANCER [None]
  - BLOOD CREATININE DECREASED [None]
  - BLOOD ERYTHROPOIETIN INCREASED [None]
  - BLOOD IMMUNOGLOBULIN G DECREASED [None]
  - HYPOGAMMAGLOBULINAEMIA [None]
  - IMMUNOGLOBULINS DECREASED [None]
  - LIGHT CHAIN DISEASE [None]
  - MARROW HYPERPLASIA [None]
  - MYELODYSPLASTIC SYNDROME [None]
  - NEUTROPHIL PERCENTAGE INCREASED [None]
  - PANCYTOPENIA [None]
  - PROTEIN TOTAL DECREASED [None]
